FAERS Safety Report 6222244-9 (Version None)
Quarter: 2009Q2

REPORT INFORMATION
  Report Type: 
  Country: None (occurrence: None)
  Receive Date: 20090611
  Receipt Date: 20090605
  Transmission Date: 20091009
  Serious: Yes (Other)
  Sender: FDA-Public Use
  Company Number: US-ASTRAZENECA-2009UW14610

PATIENT
  Age: 73 Year
  Sex: Female

DRUGS (12)
  1. NEXIUM [Suspect]
     Route: 048
  2. SEROQUEL [Suspect]
     Route: 048
  3. PAXIL [Concomitant]
  4. KLONOPIN [Concomitant]
  5. TRAZODONE HCL [Concomitant]
  6. ROPINIROLE [Concomitant]
  7. HYDRAZINE [Concomitant]
  8. BENTYL [Concomitant]
  9. LEVOTHYROXINE [Concomitant]
  10. BACLOFEN [Concomitant]
  11. VICODIN [Concomitant]
  12. ASPIRIN [Concomitant]

REACTIONS (3)
  - ABDOMINAL PAIN UPPER [None]
  - BIPOLAR DISORDER [None]
  - WEIGHT INCREASED [None]
